FAERS Safety Report 17952575 (Version 1)
Quarter: 2020Q2

REPORT INFORMATION
  Report Type: Spontaneous
  Country: FR (occurrence: FR)
  Receive Date: 20200626
  Receipt Date: 20200626
  Transmission Date: 20200714
  Serious: Yes (Life-Threatening, Hospitalization, Disabling, Other)
  Sender: FDA-Public Use
  Company Number: NVSC2020FR177303

PATIENT
  Age: 37 Year
  Sex: Female

DRUGS (35)
  1. OMEPRAZOLE. [Suspect]
     Active Substance: OMEPRAZOLE
     Indication: PRODUCT USED FOR UNKNOWN INDICATION
     Dosage: UNK
     Route: 065
     Dates: start: 20180108
  2. SULFAMETHOXAZOLE AND TRIMETHOPRIM [Suspect]
     Active Substance: SULFAMETHOXAZOLE\TRIMETHOPRIM
     Indication: PRODUCT USED FOR UNKNOWN INDICATION
     Dosage: UNK
     Route: 065
     Dates: start: 20180328
  3. METRONIDAZOLE. [Suspect]
     Active Substance: METRONIDAZOLE
     Indication: PRODUCT USED FOR UNKNOWN INDICATION
     Dosage: UNK
     Route: 065
     Dates: start: 20180326
  4. OMEPRAZOL [Suspect]
     Active Substance: OMEPRAZOLE
     Route: 065
     Dates: start: 20180108
  5. IBUPROFENE ZENTIVA [Suspect]
     Active Substance: IBUPROFEN
     Indication: PRODUCT USED FOR UNKNOWN INDICATION
     Dosage: UNK
     Route: 065
  6. TIXOCORTOL [Suspect]
     Active Substance: TIXOCORTOL PIVALATE
     Indication: PRODUCT USED FOR UNKNOWN INDICATION
     Dosage: UNK
     Route: 065
     Dates: start: 20180511
  7. CARBON [Suspect]
     Active Substance: ACTIVATED CHARCOAL
     Indication: PRODUCT USED FOR UNKNOWN INDICATION
     Dosage: UNK
     Route: 065
     Dates: start: 20180320
  8. SULBUTIAMINE [Suspect]
     Active Substance: SULBUTIAMINE
     Indication: PRODUCT USED FOR UNKNOWN INDICATION
     Route: 065
     Dates: start: 20180326
  9. ALVERINI CITRAS, SIMETICON [Suspect]
     Active Substance: ALVERINE CITRATE\DIMETHICONE
     Route: 065
     Dates: start: 20180320
  10. PARACETAMOL [Suspect]
     Active Substance: ACETAMINOPHEN
     Dosage: UNK
     Route: 065
     Dates: start: 20180707
  11. NALTREXON [Suspect]
     Active Substance: NALTREXONE
     Indication: PRODUCT USED FOR UNKNOWN INDICATION
     Dosage: UNK
     Route: 065
     Dates: start: 20180320
  12. TIXOCORTOL [Suspect]
     Active Substance: TIXOCORTOL PIVALATE
     Dosage: UNK
     Route: 065
     Dates: start: 20180630
  13. ERYTHROMYCINE [Suspect]
     Active Substance: ERYTHROMYCIN
     Route: 065
     Dates: start: 20180511
  14. PARACETAMOL [Suspect]
     Active Substance: ACETAMINOPHEN
     Indication: PRODUCT USED FOR UNKNOWN INDICATION
     Dosage: UNK
     Route: 065
     Dates: start: 20180412
  15. CODEINE [Suspect]
     Active Substance: CODEINE
     Indication: COUGH
     Dosage: UNK
     Route: 065
     Dates: start: 20180630
  16. CODEINE [Suspect]
     Active Substance: CODEINE
     Dosage: UNK
     Route: 065
     Dates: start: 20180707
  17. ALPRAZOLAM. [Suspect]
     Active Substance: ALPRAZOLAM
     Indication: PRODUCT USED FOR UNKNOWN INDICATION
     Dosage: UNK
     Route: 065
     Dates: start: 20180320
  18. TRIMEBUTINE [Suspect]
     Active Substance: TRIMEBUTINE
     Indication: PRODUCT USED FOR UNKNOWN INDICATION
     Dosage: UNK
     Route: 065
     Dates: start: 20180326
  19. METHOCARBAMOL. [Suspect]
     Active Substance: METHOCARBAMOL
     Indication: PRODUCT USED FOR UNKNOWN INDICATION
     Dosage: UNK
     Route: 065
     Dates: start: 20180412
  20. LACTOBACILLUS ACIDOPHILUS [Suspect]
     Active Substance: LACTOBACILLUS ACIDOPHILUS
     Indication: PRODUCT USED FOR UNKNOWN INDICATION
     Route: 065
     Dates: start: 20180403
  21. BECLOMETHASONE [Suspect]
     Active Substance: BECLOMETHASONE
     Indication: PRODUCT USED FOR UNKNOWN INDICATION
     Dosage: UNK
     Route: 065
     Dates: start: 20180630
  22. NICOTINE. [Suspect]
     Active Substance: NICOTINE
     Indication: PRODUCT USED FOR UNKNOWN INDICATION
     Dosage: UNK
     Route: 065
     Dates: start: 20180108
  23. ZINC ^AGUETTANT^ [Suspect]
     Active Substance: ZINC GLUCONATE
     Indication: PRODUCT USED FOR UNKNOWN INDICATION
     Dosage: UNK
     Route: 065
     Dates: start: 20180511
  24. SULFAMETHOXAZOL, TRIMETHOPRIM [Suspect]
     Active Substance: SULFAMETHOXAZOLE\TRIMETHOPRIM
     Route: 065
     Dates: start: 20180328
  25. ZINC. [Suspect]
     Active Substance: ZINC
     Route: 065
     Dates: start: 20180511
  26. IBUPROFENE ZENTIVA 400 MG, COMPRIM?? PELLICUL?? [Suspect]
     Active Substance: IBUPROFEN
     Route: 065
  27. NICOTIN [Suspect]
     Active Substance: NICOTINE
     Route: 065
     Dates: start: 20180108
  28. LACTOBACILLUS  ACIDOPHILUS [Suspect]
     Active Substance: LACTOBACILLUS ACIDOPHILUS
     Route: 065
     Dates: start: 20180403
  29. CODEINE [Suspect]
     Active Substance: CODEINE
     Indication: COUGH
     Route: 065
     Dates: start: 20180707
  30. DEXTROMETHORPHANE [Suspect]
     Active Substance: DEXTROMETHORPHAN
     Indication: PRODUCT USED FOR UNKNOWN INDICATION
     Dosage: UNK
     Route: 065
     Dates: start: 20180630
  31. ALVERINE CITRATE [Suspect]
     Active Substance: ALVERINE CITRATE
     Indication: PRODUCT USED FOR UNKNOWN INDICATION
     Dosage: UNK
     Route: 065
     Dates: start: 20180320
  32. ERYTHROMYCIN. [Suspect]
     Active Substance: ERYTHROMYCIN
     Indication: PRODUCT USED FOR UNKNOWN INDICATION
     Dosage: UNK
     Route: 065
     Dates: start: 20180511
  33. CARBON MEDICINALIS, SACCHAROMYCES CEREVISIAL [Suspect]
     Active Substance: ACTIVATED CHARCOAL\SACCHAROMYCES CEREVISIAE
     Route: 065
     Dates: start: 20180320
  34. METRONIDAZOL [Suspect]
     Active Substance: METRONIDAZOLE
     Route: 065
     Dates: start: 20180326
  35. METHOCARBAMOL. [Suspect]
     Active Substance: METHOCARBAMOL
     Route: 065
     Dates: start: 20180412

REACTIONS (5)
  - Septic shock [Recovered/Resolved with Sequelae]
  - Pneumonia streptococcal [Recovered/Resolved]
  - Necrosis ischaemic [Recovered/Resolved with Sequelae]
  - Beta haemolytic streptococcal infection [Recovered/Resolved]
  - Loss of consciousness [Recovered/Resolved]
